FAERS Safety Report 18447203 (Version 1)
Quarter: 2020Q4

REPORT INFORMATION
  Report Type: Spontaneous
  Country: US (occurrence: US)
  Receive Date: 20201030
  Receipt Date: 20201030
  Transmission Date: 20210114
  Serious: No
  Sender: FDA-Public Use
  Company Number: US-NOVOPROD-692907

PATIENT
  Age: 37 Year
  Sex: Female

DRUGS (1)
  1. TRESIBA [Suspect]
     Active Substance: INSULIN DEGLUDEC
     Indication: DIABETES MELLITUS MANAGEMENT
     Dosage: 10 IU, QD
     Route: 058
     Dates: start: 20191001, end: 20191008

REACTIONS (5)
  - Palpitations [Recovering/Resolving]
  - Diabetes mellitus inadequate control [Recovering/Resolving]
  - Suspected product tampering [Unknown]
  - Rash [Recovering/Resolving]
  - Chest pain [Recovering/Resolving]
